FAERS Safety Report 4888165-9 (Version None)
Quarter: 2006Q1

REPORT INFORMATION
  Report Type: 
  Country: None (occurrence: None)
  Receive Date: 20060119
  Receipt Date: 20060110
  Transmission Date: 20060701
  Serious: Yes (Hospitalization)
  Sender: FDA-Public Use
  Company Number: 2006BI000614

PATIENT
  Age: 60 Year
  Sex: Female
  Weight: 59.8748 kg

DRUGS (8)
  1. AVONEX [Suspect]
     Indication: MULTIPLE SCLEROSIS
     Dosage: 30 UG;QW;IM
     Route: 030
     Dates: start: 19970101
  2. AVONEX [Suspect]
     Indication: MULTIPLE SCLEROSIS
     Dosage: IM
     Route: 030
  3. HYDROCODONE BITARTRATE [Concomitant]
  4. EFFEXOR XR [Concomitant]
  5. ACIPHEX [Concomitant]
  6. OYSCO [Concomitant]
  7. DETROL LA [Concomitant]
  8. ACETAMINOPHEN [Concomitant]

REACTIONS (3)
  - ABASIA [None]
  - ASTHENIA [None]
  - FAECAL INCONTINENCE [None]
